FAERS Safety Report 8909974 (Version 1)
Quarter: 2012Q4

REPORT INFORMATION
  Report Type: 
  Country: DE (occurrence: DE)
  Receive Date: 20121114
  Receipt Date: 20121114
  Transmission Date: 20130627
  Serious: Yes (Hospitalization)
  Sender: FDA-Public Use
  Company Number: DE-B.I. PHARMACEUTICALS,INC./RIDGEFIELD-2012-DE-02659DE

PATIENT
  Age: 9 None
  Sex: Female

DRUGS (2)
  1. PRADAXA [Suspect]
     Indication: ATRIAL FIBRILLATION
     Dosage: 220 mg
  2. ASS [Concomitant]

REACTIONS (3)
  - International normalised ratio increased [Unknown]
  - Anaemia [Unknown]
  - Haematoma [Unknown]
